FAERS Safety Report 8794750 (Version 2)
Quarter: 2015Q2

REPORT INFORMATION
  Report Type: Report from Study
  Country: US (occurrence: US)
  Receive Date: 20120917
  Receipt Date: 20150403
  Transmission Date: 20150821
  Serious: Yes (Death)
  Sender: FDA-Public Use
  Company Number: US-ROCHE-1128620

PATIENT
  Age: 55 Year
  Sex: Female
  Weight: 51.98 kg

DRUGS (15)
  1. ABRAXANE [Concomitant]
     Active Substance: PACLITAXEL
     Route: 065
  2. NAVELBINE [Concomitant]
     Active Substance: VINORELBINE TARTRATE
  3. AVASTIN [Suspect]
     Active Substance: BEVACIZUMAB
     Indication: BREAST CANCER
     Route: 065
     Dates: start: 20100326
  4. XELODA [Suspect]
     Active Substance: CAPECITABINE
     Indication: BREAST CANCER
     Dosage: ONE WEEK ON ONE WEEK OFF
     Route: 065
     Dates: start: 20100326
  5. XELODA [Suspect]
     Active Substance: CAPECITABINE
     Route: 065
  6. ALBUMIN [Concomitant]
     Active Substance: ALBUMIN (HUMAN)
  7. CARBOPLATIN. [Concomitant]
     Active Substance: CARBOPLATIN
     Route: 065
     Dates: start: 20100506
  8. ZOLEDRONATE [Concomitant]
     Active Substance: ZOLEDRONIC ACID
  9. GEMZAR [Concomitant]
     Active Substance: GEMCITABINE HYDROCHLORIDE
     Route: 065
     Dates: start: 20100506
  10. TAXOL [Concomitant]
     Active Substance: PACLITAXEL
  11. DOXIL [Concomitant]
     Active Substance: DOXORUBICIN HYDROCHLORIDE
     Route: 042
  12. AVASTIN [Suspect]
     Active Substance: BEVACIZUMAB
     Route: 065
  13. ALOXI [Concomitant]
     Active Substance: PALONOSETRON HYDROCHLORIDE
     Route: 042
  14. DECADRON [Concomitant]
     Active Substance: DEXAMETHASONE
     Route: 042
  15. KYTRIL [Concomitant]
     Active Substance: GRANISETRON HYDROCHLORIDE
     Route: 065

REACTIONS (10)
  - Thrombocytopenia [Unknown]
  - Bone marrow infiltration [Unknown]
  - Ascites [Unknown]
  - Death [Fatal]
  - Pain [Unknown]
  - Bone marrow disorder [Unknown]
  - Paraesthesia [Unknown]
  - Fatigue [Unknown]
  - Jaundice [Unknown]
  - Maternal exposure during pregnancy [Unknown]

NARRATIVE: CASE EVENT DATE: 20100710
